FAERS Safety Report 14148126 (Version 2)
Quarter: 2017Q4

REPORT INFORMATION
  Report Type: Spontaneous
  Country: ES (occurrence: ES)
  Receive Date: 20171101
  Receipt Date: 20171127
  Transmission Date: 20180321
  Serious: Yes (Hospitalization)
  Sender: FDA-Public Use
  Company Number: ES-BIOVITRUM-2017ES1014

PATIENT
  Age: 13 Year
  Sex: Female
  Weight: 48.7 kg

DRUGS (6)
  1. CLOBAZAM [Concomitant]
     Active Substance: CLOBAZAM
     Indication: EPILEPSY
     Dosage: 10 12H
     Route: 048
     Dates: start: 20141219
  2. ORFADIN [Suspect]
     Active Substance: NITISINONE
     Route: 048
     Dates: start: 201604
  3. LEVETIRACETAM. [Concomitant]
     Active Substance: LEVETIRACETAM
     Indication: EPILEPSY
     Dosage: 2500 24H
     Route: 048
     Dates: start: 20131204
  4. ELECTROLYTES [Concomitant]
     Active Substance: ELECTROLYTES NOS
     Indication: HYPONATRAEMIA
  5. ORFADIN [Suspect]
     Active Substance: NITISINONE
     Indication: TYROSINAEMIA
     Dosage: 30 MG 24H
     Route: 048
     Dates: start: 200303, end: 20160419
  6. FUROSEMIDE. [Concomitant]
     Active Substance: FUROSEMIDE
     Indication: INAPPROPRIATE ANTIDIURETIC HORMONE SECRETION

REACTIONS (5)
  - Abdominal pain [Unknown]
  - Vomiting [Recovered/Resolved]
  - Inappropriate antidiuretic hormone secretion [Recovered/Resolved]
  - Decreased appetite [Recovered/Resolved]
  - Porphyria [Recovered/Resolved]

NARRATIVE: CASE EVENT DATE: 20160415
